FAERS Safety Report 7985261-4 (Version None)
Quarter: 2011Q4

REPORT INFORMATION
  Report Type: 
  Country: None (occurrence: None)
  Receive Date: 20111216
  Receipt Date: 20111202
  Transmission Date: 20120403
  Serious: Yes (Hospitalization)
  Sender: FDA-Public Use
  Company Number: DE-CELGENEUS-062-50794-11120468

PATIENT
  Age: 53 Year
  Sex: Male

DRUGS (3)
  1. IDARUBICIN HCL [Suspect]
     Dosage: 22 MILLIGRAM
     Route: 065
     Dates: start: 20111018
  2. ETOPOSIDE [Suspect]
     Dosage: 180 MILLIGRAM
     Route: 065
     Dates: start: 20111018
  3. VIDAZA [Suspect]
     Dosage: 180 MILLIGRAM
     Route: 058
     Dates: start: 20111021, end: 20111022

REACTIONS (1)
  - RHABDOMYOLYSIS [None]
